FAERS Safety Report 13551057 (Version 2)
Quarter: 2017Q2

REPORT INFORMATION
  Report Type: Spontaneous
  Country: US (occurrence: US)
  Receive Date: 20170516
  Receipt Date: 20170629
  Transmission Date: 20170830
  Serious: Yes (Other)
  Sender: FDA-Public Use
  Company Number: US-PFIZER INC-2017132946

PATIENT
  Age: 63 Year
  Sex: Male
  Weight: 81.63 kg

DRUGS (3)
  1. SUTENT [Suspect]
     Active Substance: SUNITINIB MALATE
     Indication: MENINGIOMA
     Dosage: 50 MG, CYCLIC (DAILY DAYS 1-28/42 DAYS)
     Route: 048
     Dates: start: 201703, end: 201705
  2. SUTENT [Suspect]
     Active Substance: SUNITINIB MALATE
     Dosage: 37.5 MG, CYCLIC, (D 1-28 Q 42 DAYS)
     Route: 048
     Dates: start: 20170325, end: 201706
  3. SUTENT [Suspect]
     Active Substance: SUNITINIB MALATE
     Dosage: 37.5 MG, CYCLIC, (DAILY DAYS 1-28/42DAYS)

REACTIONS (7)
  - Renal disorder [Unknown]
  - Product use in unapproved indication [Unknown]
  - Thrombocytopenia [Unknown]
  - Muscle spasms [Unknown]
  - Blood creatinine increased [Unknown]
  - Proteinuria [Unknown]
  - Muscle twitching [Unknown]

NARRATIVE: CASE EVENT DATE: 201703
